FAERS Safety Report 5757931-X (Version None)
Quarter: 2008Q2

REPORT INFORMATION
  Report Type: 
  Country: None (occurrence: None)
  Receive Date: 20080602
  Receipt Date: 20080602
  Transmission Date: 20081010
  Serious: Yes (Other)
  Sender: FDA-Public Use
  Company Number: None

PATIENT
  Age: 65 Year
  Sex: Female
  Weight: 78.0187 kg

DRUGS (1)
  1. FELODIPINE [Suspect]
     Indication: HYPERTENSION
     Dosage: 10 MG 2X DAY PO
     Route: 048
     Dates: start: 20071017, end: 20080523

REACTIONS (4)
  - GINGIVITIS [None]
  - LOOSE TOOTH [None]
  - MASTICATION DISORDER [None]
  - TOOTH DISORDER [None]
